FAERS Safety Report 5202330-2 (Version None)
Quarter: 2006Q4

REPORT INFORMATION
  Report Type: 
  Country: None (occurrence: None)
  Receive Date: 20061012
  Receipt Date: 20060202
  Transmission Date: 20070319
  Serious: Yes (Other)
  Sender: FDA-Public Use
  Company Number: US-JNJFOC-20060201190

PATIENT
  Age: 71 Year
  Sex: Male
  Weight: 122.4712 kg

DRUGS (2)
  1. NATRECOR [Suspect]
     Indication: CARDIAC FAILURE CONGESTIVE
     Dosage: 1 DOSE(S), 1 IN 1 TOTAL;
     Dates: start: 20050612
  2. NATRECOR [Suspect]
     Indication: CARDIAC FAILURE CONGESTIVE
     Dosage: 1 DOSE(S), 1 IN 1 TOTAL;
     Dates: start: 20050613

REACTIONS (1)
  - HYPOTENSION [None]
